FAERS Safety Report 13891172 (Version 1)
Quarter: 2017Q3

REPORT INFORMATION
  Report Type: Spontaneous
  Country: US (occurrence: US)
  Receive Date: 20170822
  Receipt Date: 20170822
  Transmission Date: 20171127
  Serious: No
  Sender: FDA-Public Use
  Company Number: US-PFIZER INC-2017354878

PATIENT
  Age: 83 Year
  Sex: Female

DRUGS (9)
  1. VISINE [Suspect]
     Active Substance: TETRAHYDROZOLINE HYDROCHLORIDE
     Indication: GLAUCOMA
     Dosage: UNK
  2. VISINE [Suspect]
     Active Substance: TETRAHYDROZOLINE HYDROCHLORIDE
     Indication: DRY EYE
  3. ADVANCED EYE RELIEF DRY EYE REJUVENATION [Suspect]
     Active Substance: GLYCERIN\PROPYLENE GLYCOL
     Indication: DRY EYE
  4. TEARS NATURAL [Suspect]
     Active Substance: DEXTRAN
     Dosage: 2 GTT, 2X/DAY (1 DROP EACH EYE TWICE A DAY)
     Route: 047
  5. LATANOPROST. [Suspect]
     Active Substance: LATANOPROST
     Indication: GLAUCOMA
     Dosage: 2 GTT, 2X/DAY (1 DROP EACH EYE TWICE A DAY)
     Route: 047
  6. LATANOPROST. [Suspect]
     Active Substance: LATANOPROST
     Indication: DRY EYE
     Dosage: 2 GTT, 2X/DAY (1 DROP EACH EYE TWICE A DAY)
     Route: 047
  7. SYSTANE ULTRA [Suspect]
     Active Substance: POLYETHYLENE GLYCOL 400\PROPYLENE GLYCOL
     Indication: GLAUCOMA
     Dosage: UNK
  8. SYSTANE ULTRA [Suspect]
     Active Substance: POLYETHYLENE GLYCOL 400\PROPYLENE GLYCOL
     Indication: DRY EYE
  9. ADVANCED EYE RELIEF DRY EYE REJUVENATION [Suspect]
     Active Substance: GLYCERIN\PROPYLENE GLYCOL
     Indication: GLAUCOMA
     Dosage: UNK

REACTIONS (2)
  - Incorrect dose administered [Unknown]
  - Eye irritation [Unknown]
